FAERS Safety Report 25378159 (Version 1)
Quarter: 2025Q2

REPORT INFORMATION
  Report Type: Spontaneous
  Country: US (occurrence: US)
  Receive Date: 20250530
  Receipt Date: 20250530
  Transmission Date: 20250717
  Serious: No
  Sender: CIPLA
  Company Number: US-CIPLA LTD.-2024US04928

PATIENT

DRUGS (2)
  1. ALBUTEROL [Suspect]
     Active Substance: ALBUTEROL
     Indication: Asthma
     Dates: start: 20231214
  2. LEVOTHYROXINE [Concomitant]
     Active Substance: LEVOTHYROXINE
     Indication: Thyroid disorder
     Dosage: 112 MICROGRAM, QD
     Route: 065
     Dates: start: 2013

REACTIONS (5)
  - Dyspnoea [Unknown]
  - Device delivery system issue [Unknown]
  - Drug dose omission by device [Unknown]
  - Drug ineffective [Unknown]
  - Wrong technique in product usage process [Unknown]
